FAERS Safety Report 5575396-8 (Version None)
Quarter: 2007Q4

REPORT INFORMATION
  Report Type: 
  Country: None (occurrence: None)
  Receive Date: 20071227
  Receipt Date: 20060731
  Transmission Date: 20080405
  Serious: Yes (Other)
  Sender: FDA-Public Use
  Company Number: JP-BOEHRINGER INGELHEIM PHARMACEUTICALS, INC.-2006-BP-06068NB

PATIENT
  Age: 69 Year
  Sex: Female

DRUGS (4)
  1. BI-SIFROL TABLETS [Suspect]
     Indication: PARKINSON'S DISEASE
     Route: 048
     Dates: start: 20050201, end: 20050614
  2. MENESIT [Concomitant]
     Indication: PARKINSON'S DISEASE
     Route: 048
  3. PURSENNID (SENNOSIDE) [Concomitant]
     Indication: PARKINSON'S DISEASE
     Route: 048
  4. DEPAS [Concomitant]
     Indication: PARKINSON'S DISEASE
     Route: 048

REACTIONS (1)
  - POSTURE ABNORMAL [None]
